FAERS Safety Report 5065080-1 (Version None)
Quarter: 2006Q3

REPORT INFORMATION
  Report Type: 
  Country: None (occurrence: None)
  Receive Date: 20060706
  Receipt Date: 20060516
  Transmission Date: 20061208
  Serious: No
  Sender: FDA-Public Use
  Company Number: 200613283BWH

PATIENT
  Age: 57 Year
  Sex: Male

DRUGS (7)
  1. LEVITRA [Suspect]
     Indication: ERECTILE DYSFUNCTION
     Dosage: 20 MG, QOD, ORAL
     Route: 048
     Dates: start: 20040501
  2. BAYER ASA [Concomitant]
  3. ALTACE [Concomitant]
  4. WELLBUTRIN XL [Concomitant]
  5. CONCERTA [Concomitant]
  6. PREVACID [Concomitant]
  7. CHOLESTEROL MEDICATION [Concomitant]

REACTIONS (1)
  - ERECTILE DYSFUNCTION [None]
